FAERS Safety Report 5149042-1 (Version None)
Quarter: 2006Q4

REPORT INFORMATION
  Report Type: 
  Country: None (occurrence: None)
  Receive Date: 20061108
  Receipt Date: 20061107
  Transmission Date: 20070319
  Serious: No
  Sender: FDA-Public Use
  Company Number: 06H-163-0310993-00

PATIENT
  Sex: Male

DRUGS (1)
  1. EPHEDRINE SULFATE [Suspect]
     Indication: HYPOTENSION
     Dosage: 10 MG, ONCE, INTRAVENOUS
     Route: 042
     Dates: start: 20061027, end: 20061027

REACTIONS (2)
  - BRADYCARDIA [None]
  - HYPERTENSION [None]
